FAERS Safety Report 21949323 (Version 1)
Quarter: 2023Q1

REPORT INFORMATION
  Report Type: Spontaneous
  Country: US (occurrence: None)
  Receive Date: 20230202
  Receipt Date: 20230202
  Transmission Date: 20230417
  Serious: No
  Sender: FDA-Public Use
  Company Number: None

PATIENT
  Sex: Female
  Weight: 69.85 kg

DRUGS (14)
  1. CAPECITABINE [Suspect]
     Active Substance: CAPECITABINE
     Indication: Metastases to liver
     Dosage: FREQUENCY : TWICE A DAY;?OTHER ROUTE : ORAL 14D ON 7 DOFF;?
     Route: 050
  2. TEMOZOLOMIDE [Suspect]
     Active Substance: TEMOZOLOMIDE
     Indication: Metastases to liver
     Dosage: FREQUENCY : TWICE A DAY;?OTHER ROUTE : ORAL D 10-14 OF 28 D CYC;?
     Route: 050
  3. ALPRAZOLAM [Concomitant]
     Active Substance: ALPRAZOLAM
  4. AFINITOR [Concomitant]
     Active Substance: EVEROLIMUS
  5. ASPIRIN [Concomitant]
     Active Substance: ASPIRIN
  6. CARVEDILOL [Concomitant]
     Active Substance: CARVEDILOL
  7. DEXAMETHASONE [Concomitant]
     Active Substance: DEXAMETHASONE
  8. GABAPENTIN [Concomitant]
     Active Substance: GABAPENTIN
  9. GLYBURIDE [Concomitant]
  10. LEVOTHYROXINE [Concomitant]
     Active Substance: LEVOTHYROXINE
  11. LISINOPRIL [Concomitant]
     Active Substance: LISINOPRIL
  12. METFORMIN [Concomitant]
     Active Substance: METFORMIN HYDROCHLORIDE
  13. ONDANSETRON [Concomitant]
  14. OXYCODONE [Concomitant]
     Active Substance: OXYCODONE

REACTIONS (2)
  - Full blood count decreased [None]
  - Therapy interrupted [None]
